FAERS Safety Report 4622367-1 (Version None)
Quarter: 2005Q1

REPORT INFORMATION
  Report Type: 
  Country: None (occurrence: None)
  Receive Date: 20050325
  Receipt Date: 20050325
  Transmission Date: 20050727
  Serious: No
  Sender: FDA-Public Use
  Company Number: None

PATIENT
  Sex: Female
  Weight: 95 kg

DRUGS (2)
  1. ADRIAMYCIN PFS [Suspect]
     Dosage: 60MG/M2IV ON DAY 1
     Route: 042
     Dates: start: 20040923
  2. CYCLOPHOSPHAMIDE [Suspect]
     Dosage: 600MG/M2 IV ON DAY 1
     Route: 042

REACTIONS (4)
  - BLOOD POTASSIUM DECREASED [None]
  - CHEST PAIN [None]
  - DIZZINESS [None]
  - FACIAL PALSY [None]
